FAERS Safety Report 14957396 (Version 4)
Quarter: 2018Q3

REPORT INFORMATION
  Report Type: Report from Study
  Country: DE (occurrence: DE)
  Receive Date: 20180531
  Receipt Date: 20180925
  Transmission Date: 20181010
  Serious: Yes (Congenital Anomaly)
  Sender: FDA-Public Use
  Company Number: DE-PFIZER INC-2018218299

PATIENT
  Sex: Male
  Weight: 2 kg

DRUGS (4)
  1. PARACETAMOL [Suspect]
     Active Substance: ACETAMINOPHEN
     Dosage: GESTATIONAL WEEK OF EXPOSURE? 17?21
     Route: 064
  2. SULFASALAZINE. [Suspect]
     Active Substance: SULFASALAZINE
     Dosage: GESTATIONAL WEEK OF EXPOSURE? 0?17
     Route: 064
  3. DICLOFENAC [Suspect]
     Active Substance: DICLOFENAC
     Indication: RHEUMATOID ARTHRITIS
     Dosage: 100 MG, AS NEEDED, GESTSTIONAL WEEK OF EXPOSURE 0?19 + 4
     Route: 064
  4. HYDROXYCHLOROQUINE [Suspect]
     Active Substance: HYDROXYCHLOROQUINE
     Dosage: GESTATIONAL WEEK OF EXPOSURE? 0?13
     Route: 064

REACTIONS (2)
  - Maternal exposure during pregnancy [Unknown]
  - Microcephaly [Unknown]
